FAERS Safety Report 5919636-1 (Version None)
Quarter: 2008Q4

REPORT INFORMATION
  Report Type: 
  Country: None (occurrence: None)
  Receive Date: 20081015
  Receipt Date: 20081009
  Transmission Date: 20090506
  Serious: Yes (Hospitalization)
  Sender: FDA-Public Use
  Company Number: US-KINGPHARMUSA00001-K200801181

PATIENT

DRUGS (10)
  1. ALTACE [Suspect]
     Dosage: 2.5 MG, QD
     Route: 048
     Dates: start: 20080721, end: 20080808
  2. AMARYL [Suspect]
     Dosage: 2 MG, UNK
     Route: 048
     Dates: start: 20080721, end: 20080806
  3. SELOKEN                            /00376902/ [Suspect]
     Dosage: 100 MG, UNK
     Route: 048
     Dates: start: 20080721, end: 20080808
  4. TAHOR [Suspect]
     Dosage: 80 MG, UNK
     Route: 048
     Dates: start: 20080721, end: 20080807
  5. GLUCOPHAGE [Concomitant]
     Indication: TYPE 2 DIABETES MELLITUS
     Dosage: 850 MG, BID 17 DAYS PER MONTH
     Route: 048
     Dates: start: 20080721, end: 20080806
  6. KARDEGIC                           /00002703/ [Concomitant]
     Dosage: 75 MG, UNK
     Route: 048
     Dates: start: 20080721
  7. INIPOMP                            /01263201/ [Concomitant]
     Dosage: 20 MG, UNK
     Route: 048
     Dates: start: 20080721
  8. PLAVIX [Concomitant]
     Dosage: 75 MG, UNK
     Route: 048
     Dates: start: 20080721
  9. CORTANCYL [Concomitant]
     Indication: SYSTEMIC LUPUS ERYTHEMATOSUS
     Dosage: 5 MG, UNK
     Route: 048
  10. CORTANCYL [Concomitant]

REACTIONS (9)
  - ASTHENIA [None]
  - CYTOLYTIC HEPATITIS [None]
  - EOSINOPHILIA [None]
  - HEPATITIS CHOLESTATIC [None]
  - HUMAN HERPESVIRUS 6 INFECTION [None]
  - HYPERTHERMIA [None]
  - JAUNDICE [None]
  - NAUSEA [None]
  - RASH MACULO-PAPULAR [None]
